FAERS Safety Report 20808427 (Version 1)
Quarter: 2022Q2

REPORT INFORMATION
  Report Type: Spontaneous
  Country: US (occurrence: None)
  Receive Date: 20220509
  Receipt Date: 20220509
  Transmission Date: 20220720
  Serious: Yes (Other)
  Sender: FDA-Public Use
  Company Number: None

PATIENT
  Age: 89 Year
  Sex: Male
  Weight: 86 kg

DRUGS (6)
  1. INFED [Suspect]
     Active Substance: IRON DEXTRAN
     Indication: Iron deficiency anaemia
     Dosage: OTHER FREQUENCY : ONCE;?
     Route: 042
     Dates: start: 20220427, end: 20220427
  2. Atorvastatin 40mg PO once daily [Concomitant]
  3. Celexa 10mg PO once daily [Concomitant]
  4. Pantoprazole 40mg PO once daily [Concomitant]
  5. Torsemide 40mg PO once daily [Concomitant]
  6. Niacin 250mg PO once daily [Concomitant]

REACTIONS (10)
  - Throat irritation [None]
  - Feeling hot [None]
  - Dyspnoea [None]
  - Dyspnoea [None]
  - Oxygen saturation decreased [None]
  - Tachypnoea [None]
  - Use of accessory respiratory muscles [None]
  - Heart rate increased [None]
  - Blood pressure increased [None]
  - Infusion related reaction [None]

NARRATIVE: CASE EVENT DATE: 20220427
